FAERS Safety Report 11587336 (Version 1)
Quarter: 2015Q3

REPORT INFORMATION
  Report Type: Spontaneous
  Country: US (occurrence: US)
  Receive Date: 20150916
  Receipt Date: 20150916
  Transmission Date: 20151125
  Serious: No
  Sender: FDA-Public Use
  Company Number: US-ELI_LILLY_AND_COMPANY-US200802001470

PATIENT
  Age: 59 Year
  Sex: Female

DRUGS (3)
  1. FORTEO [Suspect]
     Active Substance: TERIPARATIDE
     Indication: OSTEOPOROSIS
     Dosage: UNK, UNKNOWN
     Route: 058
     Dates: start: 200609
  2. MULTIVITAMIN [Concomitant]
     Active Substance: VITAMINS
  3. CALCIUM [Concomitant]
     Active Substance: CALCIUM
     Dosage: 600 MG, 3/D

REACTIONS (2)
  - Drug ineffective [Not Recovered/Not Resolved]
  - Bone density decreased [Not Recovered/Not Resolved]

NARRATIVE: CASE EVENT DATE: 200709
